FAERS Safety Report 8189506-X (Version None)
Quarter: 2012Q1

REPORT INFORMATION
  Report Type: 
  Country: None (occurrence: None)
  Receive Date: 20120307
  Receipt Date: 20120305
  Transmission Date: 20120608
  Serious: No
  Sender: FDA-Public Use
  Company Number: US-PFIZER INC-2012059825

PATIENT
  Sex: Male
  Weight: 83.9 kg

DRUGS (1)
  1. NICOTROL [Suspect]
     Indication: SMOKING CESSATION THERAPY
     Dosage: UNK, 3X/DAY
     Dates: start: 20110101

REACTIONS (2)
  - DRUG INTOLERANCE [None]
  - PRODUCT TASTE ABNORMAL [None]
